FAERS Safety Report 5234525-6 (Version None)
Quarter: 2007Q1

REPORT INFORMATION
  Report Type: 
  Country: None (occurrence: None)
  Receive Date: 20070209
  Receipt Date: 20070129
  Transmission Date: 20070707
  Serious: Yes (Life-Threatening, Hospitalization)
  Sender: FDA-Public Use
  Company Number: VE-MERCK-0701VEN00001

PATIENT
  Age: 63 Year
  Sex: Male
  Weight: 67 kg

DRUGS (4)
  1. VYTORIN [Suspect]
     Route: 048
     Dates: start: 20061001, end: 20070125
  2. ASPIRIN [Concomitant]
     Route: 048
     Dates: start: 20061009
  3. FOSINOPRIL SODIUM AND HYDROCHLOROTHIAZIDE [Concomitant]
     Indication: HYPERTENSION
     Route: 048
     Dates: start: 20061009
  4. METILDIGOXIN [Concomitant]
     Route: 048
     Dates: start: 20061009

REACTIONS (5)
  - PAIN [None]
  - PYREXIA [None]
  - RENAL FAILURE [None]
  - RHABDOMYOLYSIS [None]
  - TRANSAMINASES INCREASED [None]
